FAERS Safety Report 9922440 (Version 1)
Quarter: 2014Q1

REPORT INFORMATION
  Report Type: Spontaneous
  Country: US (occurrence: None)
  Receive Date: 20140224
  Receipt Date: 20140224
  Transmission Date: 20141002
  Serious: Yes (Disabling)
  Sender: FDA-Public Use
  Company Number: None

PATIENT
  Age: 49 Year
  Sex: Female
  Weight: 79.38 kg

DRUGS (2)
  1. BENICAR [Suspect]
     Indication: BLOOD POTASSIUM DECREASED
     Dosage: 1 PILL TWICE DAILY
     Route: 048
     Dates: start: 20131216, end: 20140218
  2. BENICAR [Suspect]
     Indication: BLOOD PRESSURE FLUCTUATION
     Dosage: 1 PILL TWICE DAILY
     Route: 048
     Dates: start: 20131216, end: 20140218

REACTIONS (2)
  - Dyspnoea [None]
  - Fatigue [None]
